FAERS Safety Report 8062919-2 (Version None)
Quarter: 2012Q1

REPORT INFORMATION
  Report Type: 
  Country: None (occurrence: None)
  Receive Date: 20120123
  Receipt Date: 20120123
  Transmission Date: 20120608
  Serious: Yes (Other)
  Sender: FDA-Public Use
  Company Number: None

PATIENT
  Age: 49 Year
  Sex: Female
  Weight: 49.895 kg

DRUGS (2)
  1. IBUPROFEN [Suspect]
     Indication: MUSCULOSKELETAL PAIN
     Dosage: 400-600 MG
     Route: 048
     Dates: start: 20111203, end: 20120103
  2. IBUPROFEN [Suspect]
     Indication: BACK PAIN
     Dosage: 400-600 MG
     Route: 048
     Dates: start: 20111203, end: 20120103

REACTIONS (4)
  - DISEASE RECURRENCE [None]
  - CONFUSIONAL STATE [None]
  - AMNESIA [None]
  - HYPERSENSITIVITY [None]
